FAERS Safety Report 6173787-8 (Version None)
Quarter: 2009Q2

REPORT INFORMATION
  Report Type: 
  Country: None (occurrence: None)
  Receive Date: 20090430
  Receipt Date: 20090422
  Transmission Date: 20091009
  Serious: Yes (Other)
  Sender: FDA-Public Use
  Company Number: PHEH2009US04058

PATIENT
  Sex: Female

DRUGS (8)
  1. DIOVAN [Suspect]
     Dosage: 160 MG, UNK
  2. LIPITOR [Concomitant]
     Dosage: 40 MG, UNK
  3. BETAXOLOL [Concomitant]
     Dosage: 10 MG, UNK
  4. VERELAN [Concomitant]
  5. NEXIUM [Concomitant]
     Dosage: 40 MG, UNK
  6. COUMADIN [Concomitant]
     Dosage: 10 MG, UNK
  7. WELCHOL [Concomitant]
     Dosage: 625 MG, UNK
  8. MACRODANTIN [Concomitant]
     Dosage: 50 MG, UNK

REACTIONS (1)
  - HEART RATE DECREASED [None]
